FAERS Safety Report 6907741-2 (Version None)
Quarter: 2010Q3

REPORT INFORMATION
  Report Type: 
  Country: None (occurrence: None)
  Receive Date: 20100803
  Receipt Date: 20091105
  Transmission Date: 20110219
  Serious: Yes (Other)
  Sender: FDA-Public Use
  Company Number: 97-03-0443

PATIENT
  Age: 47 Year
  Sex: Female
  Weight: 106.5953 kg

DRUGS (8)
  1. INTRON A [Suspect]
     Indication: HEPATITIS C
     Dosage: 5 MIU;QD;SC     : SC
     Route: 058
     Dates: start: 19960601
  2. INTRON A [Suspect]
     Indication: HEPATITIS C
     Dosage: 5 MIU;QD;SC     : SC
     Route: 058
     Dates: start: 19970301
  3. DESYREL [Concomitant]
  4. KLONOPIN [Concomitant]
  5. REMERON [Concomitant]
  6. ADVIL LIQUI-GELS [Concomitant]
  7. MOTRIN [Concomitant]
  8. DEMEROL [Concomitant]

REACTIONS (12)
  - BLOOD CREATININE INCREASED [None]
  - BLOOD UREA INCREASED [None]
  - DECREASED APPETITE [None]
  - DEHYDRATION [None]
  - INFECTION [None]
  - INJECTION SITE REACTION [None]
  - NAUSEA [None]
  - NECROSIS ISCHAEMIC [None]
  - NO THERAPEUTIC RESPONSE [None]
  - PAIN [None]
  - SCAB [None]
  - SUICIDAL IDEATION [None]
